FAERS Safety Report 17483861 (Version 1)
Quarter: 2020Q1

REPORT INFORMATION
  Report Type: Spontaneous
  Country: US (occurrence: US)
  Receive Date: 20200301
  Receipt Date: 20200301
  Transmission Date: 20200409
  Serious: No
  Sender: FDA-Public Use
  Company Number: None

PATIENT
  Age: 44 Year
  Sex: Male
  Weight: 104.85 kg

DRUGS (1)
  1. DEXTROAMPHETAMINE-AMPHETAMINE SALTS [Suspect]
     Active Substance: AMPHETAMINE\DEXTROAMPHETAMINE
     Indication: ATTENTION DEFICIT/HYPERACTIVITY DISORDER
     Dosage: ?          QUANTITY:60 TABLET(S);?
     Route: 048
     Dates: start: 20191224, end: 20200224

REACTIONS (8)
  - Depression [None]
  - Anxiety [None]
  - Irritability [None]
  - Drug intolerance [None]
  - Personal relationship issue [None]
  - Therapeutic response decreased [None]
  - Suicidal ideation [None]
  - Product substitution issue [None]

NARRATIVE: CASE EVENT DATE: 20191224
